FAERS Safety Report 20826906 (Version 1)
Quarter: 2022Q2

REPORT INFORMATION
  Report Type: Spontaneous
  Country: US (occurrence: None)
  Receive Date: 20220513
  Receipt Date: 20220513
  Transmission Date: 20220721
  Serious: Yes (Hospitalization)
  Sender: FDA-Public Use
  Company Number: None

PATIENT
  Sex: Male
  Weight: 66.9 kg

DRUGS (1)
  1. ERBITUX [Suspect]
     Active Substance: CETUXIMAB
     Dates: start: 20210429, end: 20210520

REACTIONS (5)
  - Productive cough [None]
  - Dry mouth [None]
  - Dysphagia [None]
  - Hypernatraemia [None]
  - Dehydration [None]

NARRATIVE: CASE EVENT DATE: 20210520
